FAERS Safety Report 23993971 (Version 1)
Quarter: 2024Q2

REPORT INFORMATION
  Report Type: Spontaneous
  Country: US (occurrence: None)
  Receive Date: 20240618
  Receipt Date: 20240618
  Transmission Date: 20240716
  Serious: No
  Sender: FDA-Public Use
  Company Number: None

PATIENT
  Sex: Female

DRUGS (1)
  1. HUMIRA [Suspect]
     Active Substance: ADALIMUMAB
     Indication: Psoriatic arthropathy
     Dosage: 40 MG  EVERY 14 DAYS SUBCUTANEOUS?
     Route: 058
     Dates: start: 202309

REACTIONS (3)
  - Drug ineffective [None]
  - Inappropriate schedule of product administration [None]
  - Treatment noncompliance [None]
